FAERS Safety Report 5377777-4 (Version None)
Quarter: 2007Q3

REPORT INFORMATION
  Report Type: 
  Country: None (occurrence: None)
  Receive Date: 20070703
  Receipt Date: 20070621
  Transmission Date: 20080115
  Serious: Yes (Other)
  Sender: FDA-Public Use
  Company Number: GB-ELI_LILLY_AND_COMPANY-GB200706005011

PATIENT
  Sex: Female

DRUGS (2)
  1. EVISTA [Suspect]
     Indication: OSTEOPOROSIS
     Dosage: UNK, UNK
     Dates: start: 20070201, end: 20070101
  2. STRONTIUM RANELATE [Concomitant]

REACTIONS (2)
  - BONE MARROW OEDEMA [None]
  - FRACTURE [None]
